FAERS Safety Report 13226965 (Version 2)
Quarter: 2017Q1

REPORT INFORMATION
  Report Type: Spontaneous
  Country: CA (occurrence: CA)
  Receive Date: 20170213
  Receipt Date: 20170314
  Transmission Date: 20170428
  Serious: Yes (Other)
  Sender: FDA-Public Use
  Company Number: CA-JUBILANT PHARMA LTD-2017CA000042

PATIENT
  Age: 68 Year
  Sex: Female
  Weight: 105 kg

DRUGS (2)
  1. DRAXIMAGE? MDP [Suspect]
     Active Substance: TECHNETIUM TC-99M MEDRONATE
     Indication: DIAGNOSTIC PROCEDURE
     Dosage: 1.04 GBQ, SINGLE DOSE
     Route: 042
     Dates: start: 20160330, end: 20160330
  2. GALLIUM CITRATE GA 67 [Suspect]
     Active Substance: GALLIUM CITRATE GA-67
     Indication: DIAGNOSTIC PROCEDURE
     Dosage: 185 MBQ, SINGLE DOSE
     Route: 042
     Dates: start: 20160330, end: 20160330

REACTIONS (2)
  - Yellow skin [Unknown]
  - Rash generalised [Unknown]

NARRATIVE: CASE EVENT DATE: 20160403
